FAERS Safety Report 9342629 (Version 1)
Quarter: 2013Q2

REPORT INFORMATION
  Report Type: Spontaneous
  Country: US (occurrence: US)
  Receive Date: 20130611
  Receipt Date: 20130611
  Transmission Date: 20140414
  Serious: No
  Sender: FDA-Public Use
  Company Number: US-PFIZER INC-2013175892

PATIENT
  Age: 57 Year
  Sex: Female
  Weight: 93.88 kg

DRUGS (1)
  1. LYRICA [Suspect]
     Indication: PAIN
     Dosage: 150 MG, 1X/DAY
     Route: 048
     Dates: start: 201305, end: 201305

REACTIONS (2)
  - Nausea [Unknown]
  - Depression [Unknown]
